FAERS Safety Report 25698107 (Version 3)
Quarter: 2025Q3

REPORT INFORMATION
  Report Type: Report from Study
  Country: US (occurrence: US)
  Receive Date: 20250819
  Receipt Date: 20250909
  Transmission Date: 20251021
  Serious: Yes (Other)
  Sender: RECORDATI
  Company Number: US-SA-2023SA229955

PATIENT
  Age: 78 Year
  Sex: Female

DRUGS (6)
  1. ENJAYMO [Suspect]
     Active Substance: SUTIMLIMAB-JOME
     Indication: Cold type haemolytic anaemia
     Route: 042
     Dates: start: 202204
  2. ENJAYMO [Suspect]
     Active Substance: SUTIMLIMAB-JOME
     Dosage: 6.5 MG, QOW/ Q2W
     Route: 042
     Dates: start: 20220406
  3. ENJAYMO [Suspect]
     Active Substance: SUTIMLIMAB-JOME
     Dosage: 6500 MG, Q3W
     Route: 042
     Dates: end: 20230426
  4. ENJAYMO [Suspect]
     Active Substance: SUTIMLIMAB-JOME
     Route: 042
     Dates: start: 20230724
  5. ENJAYMO [Suspect]
     Active Substance: SUTIMLIMAB-JOME
     Route: 042
  6. ENJAYMO [Suspect]
     Active Substance: SUTIMLIMAB-JOME
     Route: 042
     Dates: start: 20250120

REACTIONS (8)
  - Loss of consciousness [Not Recovered/Not Resolved]
  - Haemoglobin decreased [Unknown]
  - Fall [Not Recovered/Not Resolved]
  - Peripheral swelling [Not Recovered/Not Resolved]
  - Dizziness [Not Recovered/Not Resolved]
  - Nausea [Not Recovered/Not Resolved]
  - Off label use [Recovered/Resolved]
  - Therapeutic product effect incomplete [Recovered/Resolved]

NARRATIVE: CASE EVENT DATE: 20220401
